FAERS Safety Report 7710810-0 (Version None)
Quarter: 2011Q3

REPORT INFORMATION
  Report Type: 
  Country: None (occurrence: None)
  Receive Date: 20110825
  Receipt Date: 20110812
  Transmission Date: 20111222
  Serious: Yes (Other)
  Sender: FDA-Public Use
  Company Number: US-BAYER-2011-073444

PATIENT
  Sex: Female

DRUGS (1)
  1. ALKA-SELTZER ORIGINAL [Suspect]
     Indication: ABDOMINAL DISCOMFORT
     Route: 048

REACTIONS (1)
  - DRUG DEPENDENCE [None]
